FAERS Safety Report 16119712 (Version 1)
Quarter: 2019Q1

REPORT INFORMATION
  Report Type: Spontaneous
  Country: DE (occurrence: DE)
  Receive Date: 20190326
  Receipt Date: 20190326
  Transmission Date: 20190418
  Serious: Yes (Death)
  Sender: FDA-Public Use
  Company Number: DE-009507513-1903DEU008603

PATIENT
  Age: 63 Year
  Sex: Male
  Weight: 74 kg

DRUGS (26)
  1. ARELIX [Suspect]
     Active Substance: PIRETANIDE
     Indication: OEDEMA
     Dosage: UNK, QD
     Route: 048
     Dates: start: 19940303, end: 19940308
  2. ACC (ACETYLCYSTEINE) [Suspect]
     Active Substance: ACETYLCYSTEINE
     Indication: ASTHMA
     Route: 048
     Dates: start: 19940304, end: 19940312
  3. ATOSIL (PROMETHAZINE HYDROCHLORIDE) [Suspect]
     Active Substance: PROMETHAZINE HYDROCHLORIDE
     Indication: MENTAL DISORDER
     Route: 048
     Dates: start: 19940304, end: 19940305
  4. KETANEST (KETAMINE HYDROCHLORIDE) [Suspect]
     Active Substance: KETAMINE HYDROCHLORIDE
     Indication: MENTAL DISORDER
     Dosage: UNK, QD
     Route: 042
     Dates: start: 19940217, end: 19940218
  5. ULCOGANT [Suspect]
     Active Substance: SUCRALFATE
     Route: 048
     Dates: start: 19940217, end: 19940225
  6. SOLU-DECORTIN [Suspect]
     Active Substance: PREDNISOLONE SODIUM SUCCINATE
     Indication: ASTHMA
     Route: 042
     Dates: start: 19940217, end: 19940226
  7. HEPARIN [Suspect]
     Active Substance: HEPARIN SODIUM
     Indication: THROMBOSIS
     Route: 058
     Dates: start: 19940217, end: 19940317
  8. EUGALAC (LACTULOSE) [Suspect]
     Active Substance: LACTULOSE
     Indication: CONSTIPATION
     Route: 048
     Dates: start: 19940217, end: 19940312
  9. LECICARBON (SODIUM BICARBONATE, ANHYDROUS MONOBASIC SODIUM PHOSPHATE) [Suspect]
     Active Substance: SODIUM BICARBONATE\SODIUM PHOSPHATE, MONOBASIC, ANHYDROUS
     Indication: CONSTIPATION
     Route: 054
     Dates: start: 19940307, end: 19940311
  10. PROPULSIN (CISAPRIDE) [Suspect]
     Active Substance: CISAPRIDE
     Indication: GASTROINTESTINAL DISORDER
     Route: 048
     Dates: start: 19940217, end: 19940302
  11. BRONCHORETARD [Suspect]
     Active Substance: THEOPHYLLINE ANHYDROUS
     Indication: ASTHMA
     Dosage: UNK, QD
     Route: 048
     Dates: start: 19940225, end: 19940317
  12. DROPERIDOL. [Suspect]
     Active Substance: DROPERIDOL
     Indication: GENERAL SYMPTOM
     Route: 042
     Dates: start: 19940219, end: 19940221
  13. SAB SIMPLEX (SIMETICONE) [Suspect]
     Active Substance: DIMETHICONE
     Indication: ABDOMINAL DISTENSION
     Route: 048
     Dates: start: 19940217, end: 19940222
  14. DIPIDOLOR [Suspect]
     Active Substance: PIRITRAMIDE
     Indication: GENERAL SYMPTOM
     Route: 042
     Dates: start: 19940217, end: 19940220
  15. CIPROBAY [CIPROFLOXACIN HYDROCHLORIDE] [Suspect]
     Active Substance: CIPROFLOXACIN
     Indication: RESPIRATORY DISORDER
     Route: 042
     Dates: start: 19940217, end: 19940220
  16. BRONCHOPARAT [Suspect]
     Active Substance: THEOPHYLLINE ANHYDROUS
     Indication: ASTHMA
     Dosage: UNK, QD
     Route: 042
     Dates: start: 19940217, end: 19940225
  17. KALINOR (POTASSIUM BICARBONATE/POTASSIUM CITRATE) [Suspect]
     Active Substance: POTASSIUM BICARBONATE\POTASSIUM CITRATE
     Route: 048
     Dates: start: 19940304, end: 19940307
  18. ZIENAM 500 [Suspect]
     Active Substance: CILASTATIN SODIUM\IMIPENEM
     Indication: RESPIRATORY DISORDER
     Route: 042
     Dates: start: 19940218, end: 19940228
  19. BAYOTENSIN [Suspect]
     Active Substance: NITRENDIPINE
     Indication: ESSENTIAL HYPERTENSION
     Route: 048
     Dates: start: 19940217, end: 19940302
  20. BEN-U-RON [Suspect]
     Active Substance: ACETAMINOPHEN
     Indication: PYREXIA
     Route: 054
     Dates: start: 19940222, end: 19940316
  21. BRONCHOSPASMIN [Suspect]
     Active Substance: REPROTEROL HYDROCHLORIDE
     Indication: ASTHMA
     Dosage: UNK, QD
     Route: 042
     Dates: start: 19940217, end: 19940225
  22. MUCOSOLVAN [Suspect]
     Active Substance: AMBROXOL HYDROCHLORIDE
     Indication: ASTHMA
     Route: 042
     Dates: start: 19940217, end: 19940225
  23. LASIX [Suspect]
     Active Substance: FUROSEMIDE
     Indication: OEDEMA
     Route: 042
     Dates: start: 19940217, end: 19940225
  24. MIDAZOLAM [Suspect]
     Active Substance: MIDAZOLAM HYDROCHLORIDE
     Indication: MENTAL DISORDER
     Dosage: UNK, QD
     Route: 042
     Dates: start: 19940218, end: 19940224
  25. BAMBEC [Suspect]
     Active Substance: BAMBUTEROL HYDROCHLORIDE
     Indication: ASTHMA
     Dosage: UNK, QD
     Route: 048
     Dates: start: 19940225, end: 19940316
  26. SANASTHMAX [Suspect]
     Active Substance: BECLOMETHASONE DIPROPIONATE
     Indication: ASTHMA
     Route: 055
     Dates: start: 19940304, end: 19940317

REACTIONS (3)
  - Respiratory disorder [Fatal]
  - Stevens-Johnson syndrome [Fatal]
  - Respiratory failure [Fatal]

NARRATIVE: CASE EVENT DATE: 19940311
